FAERS Safety Report 20885371 (Version 2)
Quarter: 2022Q2

REPORT INFORMATION
  Report Type: Report from Study
  Country: US (occurrence: None)
  Receive Date: 20220527
  Receipt Date: 20220530
  Transmission Date: 20220720
  Serious: Yes (Hospitalization)
  Sender: FDA-Public Use
  Company Number: US-ROCHE-3101782

PATIENT
  Age: 88 Year
  Sex: Female
  Weight: 69.4 kg

DRUGS (2)
  1. MOSUNETUZUMAB [Suspect]
     Active Substance: MOSUNETUZUMAB
     Indication: B-cell lymphoma
     Dosage: ON 12/MAY/2022 AT 01:50 PM MOST RECENT DOSE OF MOSUNETUZUMAB PRIOR TO AE/SAE AT 1: 50 PM PRIOR TO AE
     Route: 058
     Dates: start: 20220512
  2. POLATUZUMAB VEDOTIN [Suspect]
     Active Substance: POLATUZUMAB VEDOTIN
     Indication: B-cell lymphoma
     Dosage: ON 12/MAY/2022 MOST RECENT DOSE OF POLATUZUMAB VEDOTIN PRIOR TO SAE/AE 125.2 MG
     Route: 042
     Dates: start: 20220512

REACTIONS (1)
  - Cytokine release syndrome [Recovered/Resolved]

NARRATIVE: CASE EVENT DATE: 20220513
